FAERS Safety Report 19895268 (Version 1)
Quarter: 2021Q3

REPORT INFORMATION
  Report Type: Spontaneous
  Country: US (occurrence: US)
  Receive Date: 20210929
  Receipt Date: 20210929
  Transmission Date: 20211014
  Serious: Yes (Hospitalization)
  Sender: FDA-Public Use
  Company Number: None

PATIENT
  Age: 68 Year
  Sex: Male
  Weight: 88 kg

DRUGS (1)
  1. CHLORTHALIDONE (CHLORTHALIDONE 50MG TAB) [Suspect]
     Active Substance: CHLORTHALIDONE
     Indication: HYPERTENSION
     Dates: start: 20210519, end: 20210614

REACTIONS (3)
  - Hyponatraemia [None]
  - Blood bilirubin increased [None]
  - Fall [None]

NARRATIVE: CASE EVENT DATE: 20210614
